FAERS Safety Report 8975678 (Version 1)
Quarter: 2012Q4

REPORT INFORMATION
  Report Type: 
  Country: MX (occurrence: MX)
  Receive Date: 20121219
  Receipt Date: 20121219
  Transmission Date: 20130627
  Serious: Yes (Hospitalization, Other)
  Sender: FDA-Public Use
  Company Number: PHHY2012MX115557

PATIENT
  Age: 54 Year
  Sex: Male

DRUGS (2)
  1. EXFORGE HCT [Suspect]
     Indication: HYPERTENSION
     Dosage: 1 DF(320mg val, 10mg amlo., 12.5mg hydro.), Daily
     Route: 048
     Dates: end: 20121206
  2. OMEPRAZOLE [Concomitant]
     Dosage: 1 DF, QD
     Route: 048
     Dates: start: 20121208

REACTIONS (6)
  - Arterial occlusive disease [Recovering/Resolving]
  - Renal failure [Recovering/Resolving]
  - Vision blurred [Recovered/Resolved]
  - General physical health deterioration [Recovered/Resolved]
  - Fatigue [Recovered/Resolved]
  - Somnolence [Recovered/Resolved]
